FAERS Safety Report 13079676 (Version 1)
Quarter: 2017Q1

REPORT INFORMATION
  Report Type: Spontaneous
  Country: US (occurrence: US)
  Receive Date: 20170103
  Receipt Date: 20170103
  Transmission Date: 20170428
  Serious: No
  Sender: FDA-Public Use
  Company Number: US-BAYER-2016-239983

PATIENT
  Age: 72 Year
  Sex: Female
  Weight: 46 kg

DRUGS (6)
  1. MIRALAX [Suspect]
     Active Substance: POLYETHYLENE GLYCOL 3350
     Indication: PRODUCT USED FOR UNKNOWN INDICATION
     Dosage: UNK
     Route: 048
     Dates: end: 20161216
  2. LEVODOPA [Concomitant]
     Active Substance: LEVODOPA
  3. NO IDENTIFIABLE DRUG CC [Suspect]
     Active Substance: UNSPECIFIED INGREDIENT
     Indication: PRODUCT USED FOR UNKNOWN INDICATION
     Dosage: UNK
     Route: 048
  4. CARBIDOPA. [Concomitant]
     Active Substance: CARBIDOPA
     Dosage: UNK
  5. COREG [Concomitant]
     Active Substance: CARVEDILOL
     Dosage: UNK
  6. LORAZEPAM. [Concomitant]
     Active Substance: LORAZEPAM
     Dosage: UNK

REACTIONS (4)
  - Product use issue [Unknown]
  - Off label use [Unknown]
  - Frequent bowel movements [Recovered/Resolved]
  - Drug ineffective [Unknown]
